FAERS Safety Report 4863419-0 (Version None)
Quarter: 2005Q4

REPORT INFORMATION
  Report Type: 
  Country: None (occurrence: None)
  Receive Date: 20051222
  Receipt Date: 20041229
  Transmission Date: 20060501
  Serious: No
  Sender: FDA-Public Use
  Company Number: US-GLAXOSMITHKLINE-A0538812A

PATIENT
  Sex: Female

DRUGS (7)
  1. FLONASE [Suspect]
     Indication: RHINITIS
     Dosage: 2SPR TWICE PER DAY
     Route: 045
  2. METOPROLOL [Concomitant]
  3. MONOPRIL [Concomitant]
  4. GLUCOTROL [Concomitant]
  5. PREVACID [Concomitant]
  6. NPH INSULIN [Concomitant]
  7. GLUCOPHAGE [Concomitant]

REACTIONS (1)
  - EPISTAXIS [None]
